FAERS Safety Report 10235825 (Version 1)
Quarter: 2014Q2

REPORT INFORMATION
  Report Type: Spontaneous
  Country: PT (occurrence: None)
  Receive Date: 20140611
  Receipt Date: 20140611
  Transmission Date: 20141212
  Serious: Yes (Other)
  Sender: FDA-Public Use
  Company Number: PT-20140008

PATIENT
  Age: 41 Year
  Sex: Male

DRUGS (3)
  1. DOTAREM (GADOTERIC ACID), 13GD113B [Suspect]
     Indication: NUCLEAR MAGNETIC RESONANCE IMAGING
     Dosage: NOT OTHERWISE SPECIFIED
     Route: 042
     Dates: start: 20140429, end: 20140429
  2. HYDROCORTISONE (HYDROCORTISONE) (HYDROCORTISONE) [Concomitant]
  3. CLEMASTINE (CLEMASTINE) (CLEMASTINE) [Concomitant]

REACTIONS (4)
  - Face oedema [None]
  - Nausea [None]
  - Rash [None]
  - Vomiting [None]
